FAERS Safety Report 16890140 (Version 4)
Quarter: 2019Q4

REPORT INFORMATION
  Report Type: Report from Study
  Country: US (occurrence: US)
  Receive Date: 20191007
  Receipt Date: 20191011
  Transmission Date: 20200122
  Serious: Yes (Hospitalization, Other)
  Sender: FDA-Public Use
  Company Number: US-CELGENEUS-USA-2014103172

PATIENT
  Age: 76 Year
  Sex: Female
  Weight: 62.29 kg

DRUGS (3)
  1. REVLIMID [Suspect]
     Active Substance: LENALIDOMIDE
     Indication: PLASMA CELL MYELOMA
     Dosage: 15 MILLIGRAM
     Route: 048
     Dates: start: 20110801, end: 20130109
  2. DECADRON [Suspect]
     Active Substance: DEXAMETHASONE
     Dosage: 20 MILLIGRAM
     Route: 048
     Dates: start: 20110809, end: 20130109
  3. DECADRON [Suspect]
     Active Substance: DEXAMETHASONE
     Indication: PLASMA CELL MYELOMA
     Dosage: 20 MILLIGRAM
     Route: 048
     Dates: start: 20110801, end: 20130109

REACTIONS (9)
  - Rotator cuff syndrome [Unknown]
  - Blood pressure decreased [Unknown]
  - Fall [Unknown]
  - Anticoagulation drug level above therapeutic [Unknown]
  - Syncope [Unknown]
  - Fall [Unknown]
  - Hypophagia [Unknown]
  - Asthenia [Unknown]
  - Musculoskeletal pain [Recovered/Resolved]

NARRATIVE: CASE EVENT DATE: 20120317
